FAERS Safety Report 19436023 (Version 2)
Quarter: 2021Q3

REPORT INFORMATION
  Report Type: Spontaneous
  Country: JP (occurrence: JP)
  Receive Date: 20210618
  Receipt Date: 20210719
  Transmission Date: 20211014
  Serious: Yes (Hospitalization, Other)
  Sender: FDA-Public Use
  Company Number: JP-TEVA-2021-JP-002941J

PATIENT
  Age: 79 Year
  Sex: Female

DRUGS (3)
  1. DICLOFENAC NA SUPPOSITORY 25MG ^TAKEDA TEVA^ [Suspect]
     Active Substance: DICLOFENAC SODIUM
     Indication: PRODUCT USED FOR UNKNOWN INDICATION
     Route: 065
  2. RHEUMATREX [Suspect]
     Active Substance: METHOTREXATE SODIUM
     Indication: RHEUMATIC DISORDER
     Route: 065
     Dates: start: 202104
  3. BUCILLAMINE [Concomitant]
     Active Substance: BUCILLAMINE
     Indication: RHEUMATIC DISORDER
     Route: 065
     Dates: end: 202104

REACTIONS (1)
  - Pneumonia [Unknown]
